FAERS Safety Report 10495843 (Version 1)
Quarter: 2014Q3

REPORT INFORMATION
  Report Type: Spontaneous
  Country: US (occurrence: None)
  Receive Date: 20140815
  Receipt Date: 20140815
  Transmission Date: 20150326
  Serious: Yes (Other)
  Sender: FDA-Public Use
  Company Number: ADR-2013-01919

PATIENT
  Age: 56 Year
  Sex: Female

DRUGS (3)
  1. BUPIVACAINE [Suspect]
     Active Substance: BUPIVACAINE
  2. BACLOFEN. [Suspect]
     Active Substance: BACLOFEN
     Indication: PAIN
  3. DILAUDID [Suspect]
     Active Substance: HYDROMORPHONE HYDROCHLORIDE

REACTIONS (9)
  - Nausea [None]
  - Overdose [None]
  - Drug withdrawal syndrome [None]
  - Sedation [None]
  - Vomiting [None]
  - No therapeutic response [None]
  - Pain [None]
  - Hyperhidrosis [None]
  - Underdose [None]
